FAERS Safety Report 8959450 (Version 7)
Quarter: 2013Q3

REPORT INFORMATION
  Report Type: Report from Study
  Country: CA (occurrence: CA)
  Receive Date: 20121212
  Receipt Date: 20130717
  Transmission Date: 20140515
  Serious: Yes (Other)
  Sender: FDA-Public Use
  Company Number: CA-ROCHE-1166916

PATIENT
  Sex: Male

DRUGS (5)
  1. XELODA [Suspect]
     Indication: RECTAL CANCER
     Route: 048
     Dates: end: 201211
  2. ZELBORAF [Suspect]
     Indication: METASTATIC MALIGNANT MELANOMA
     Route: 048
     Dates: start: 20121208
  3. ZELBORAF [Suspect]
     Dosage: DOSE REDUCED
     Route: 048
  4. ZELBORAF [Suspect]
     Route: 048
     Dates: start: 201301
  5. ZELBORAF [Suspect]
     Dosage: DOSE REDUCED
     Route: 048

REACTIONS (8)
  - Metastatic malignant melanoma [Not Recovered/Not Resolved]
  - Rash [Recovered/Resolved]
  - Lymphoedema [Unknown]
  - Paraesthesia [Unknown]
  - Arthralgia [Unknown]
  - Dysgeusia [Unknown]
  - Decreased appetite [Unknown]
  - Rash pruritic [Unknown]
